FAERS Safety Report 24432319 (Version 2)
Quarter: 2025Q1

REPORT INFORMATION
  Report Type: Spontaneous
  Country: US (occurrence: US)
  Receive Date: 20241014
  Receipt Date: 20250320
  Transmission Date: 20250408
  Serious: No
  Sender: ALEXION PHARMACEUTICALS
  Company Number: US-AstraZeneca-CH-00720177AP

PATIENT

DRUGS (1)
  1. BREZTRI [Suspect]
     Active Substance: BUDESONIDE\FORMOTEROL\GLYCOPYRROLATE
     Route: 065

REACTIONS (7)
  - Device issue [Unknown]
  - Product contamination [Unknown]
  - Product use complaint [Unknown]
  - Product dose omission issue [Unknown]
  - Overdose [Unknown]
  - Incorrect dose administered by device [Unknown]
  - Visual impairment [Unknown]
